FAERS Safety Report 9379454 (Version 1)
Quarter: 2013Q3

REPORT INFORMATION
  Report Type: Spontaneous
  Country: US (occurrence: None)
  Receive Date: 20130702
  Receipt Date: 20130702
  Transmission Date: 20140515
  Serious: Yes (Life-Threatening, Hospitalization)
  Sender: FDA-Public Use
  Company Number: None

PATIENT
  Age: 45 Year
  Sex: Male
  Weight: 96.8 kg

DRUGS (1)
  1. BETAMETHASONE [Suspect]
     Indication: HEADACHE
     Route: 024
     Dates: start: 20120920, end: 20120920

REACTIONS (3)
  - Poor quality drug administered [None]
  - Drug ineffective [None]
  - Meningitis [None]
